FAERS Safety Report 23680208 (Version 4)
Quarter: 2024Q2

REPORT INFORMATION
  Report Type: Report from Study
  Country: CA (occurrence: CA)
  Receive Date: 20240327
  Receipt Date: 20240426
  Transmission Date: 20240715
  Serious: No
  Sender: FDA-Public Use
  Company Number: CA-BEH-2024169839

PATIENT
  Age: 58 Year
  Sex: Female

DRUGS (16)
  1. HIZENTRA [Suspect]
     Active Substance: HUMAN IMMUNOGLOBULIN G
     Indication: Secondary immunodeficiency
     Dosage: UNK, QW
     Route: 065
     Dates: start: 20240311
  2. HIZENTRA [Suspect]
     Active Substance: HUMAN IMMUNOGLOBULIN G
     Dosage: UNK
     Route: 065
     Dates: start: 20240311
  3. HIZENTRA [Suspect]
     Active Substance: HUMAN IMMUNOGLOBULIN G
     Dosage: UNK
     Route: 065
     Dates: start: 20240311
  4. HIZENTRA [Suspect]
     Active Substance: HUMAN IMMUNOGLOBULIN G
     Dosage: UNK
     Route: 065
     Dates: start: 20240311
  5. HIZENTRA [Suspect]
     Active Substance: HUMAN IMMUNOGLOBULIN G
     Dosage: UNK
     Route: 065
     Dates: start: 20240318
  6. HIZENTRA [Suspect]
     Active Substance: HUMAN IMMUNOGLOBULIN G
     Dosage: UNK
     Route: 065
     Dates: start: 20240325
  7. HIZENTRA [Suspect]
     Active Substance: HUMAN IMMUNOGLOBULIN G
     Dosage: UNK
     Route: 065
     Dates: start: 20240402
  8. HIZENTRA [Suspect]
     Active Substance: HUMAN IMMUNOGLOBULIN G
     Dosage: UNK
     Route: 065
     Dates: start: 20240408
  9. HIZENTRA [Suspect]
     Active Substance: HUMAN IMMUNOGLOBULIN G
     Dosage: UNK
     Route: 065
     Dates: start: 20240311
  10. HIZENTRA [Suspect]
     Active Substance: HUMAN IMMUNOGLOBULIN G
     Dosage: UNK
     Route: 065
     Dates: start: 20240416
  11. SYNTHROID [Concomitant]
     Active Substance: LEVOTHYROXINE SODIUM
  12. OPUS K 20 [Concomitant]
     Dosage: 20 MILLIEQUIVALENT, QD
  13. CYCLOPHOSPHAMIDE [Concomitant]
     Active Substance: CYCLOPHOSPHAMIDE
  14. FILGRASTIM [Concomitant]
     Active Substance: FILGRASTIM
  15. BISOPROLOL [Concomitant]
     Active Substance: BISOPROLOL\BISOPROLOL FUMARATE
     Indication: Hypertension
     Dosage: 1.25 MG, QD (IN THE MORNING)
     Route: 065
  16. CALCIUM [Concomitant]
     Active Substance: CALCIUM
     Dosage: UNK, BID

REACTIONS (25)
  - Blood pressure increased [Unknown]
  - Inadequate aseptic technique in use of product [Unknown]
  - Wrong technique in product usage process [Unknown]
  - Nervousness [Unknown]
  - Blood pressure increased [Unknown]
  - Heart rate increased [Unknown]
  - Product use complaint [Unknown]
  - Stress [Unknown]
  - Fine motor skill dysfunction [Unknown]
  - Wrong technique in product usage process [Unknown]
  - Infusion site erythema [Unknown]
  - Infusion site oedema [Unknown]
  - Product communication issue [Unknown]
  - Injection site erythema [Unknown]
  - Injection site oedema [Unknown]
  - Product use complaint [Unknown]
  - Fine motor skill dysfunction [Unknown]
  - Tremor [Unknown]
  - Inadequate aseptic technique in use of product [Unknown]
  - Nervousness [Unknown]
  - Blood calcium abnormal [Unknown]
  - Nervousness [Unknown]
  - Tremor [Unknown]
  - Injection site oedema [Unknown]
  - Injection site erythema [Unknown]

NARRATIVE: CASE EVENT DATE: 20240318
